FAERS Safety Report 21099539 (Version 3)
Quarter: 2022Q3

REPORT INFORMATION
  Report Type: Report from Study
  Country: CN (occurrence: None)
  Receive Date: 20220719
  Receipt Date: 20220722
  Transmission Date: 20221027
  Serious: Yes (Hospitalization)
  Sender: FDA-Public Use
  Company Number: CN-Eisai Medical Research-EC-2022-119133

PATIENT
  Age: 62 Year
  Sex: Male
  Weight: 55 kg

DRUGS (28)
  1. LENVATINIB [Suspect]
     Active Substance: LENVATINIB
     Indication: Oesophageal cancer metastatic
     Route: 048
     Dates: start: 20220430, end: 20220520
  2. LENVATINIB [Suspect]
     Active Substance: LENVATINIB
     Route: 048
     Dates: start: 20220528
  3. PEMBROLIZUMAB [Suspect]
     Active Substance: PEMBROLIZUMAB
     Indication: Oesophageal cancer metastatic
     Route: 041
     Dates: start: 20220430, end: 20220430
  4. PEMBROLIZUMAB [Suspect]
     Active Substance: PEMBROLIZUMAB
     Route: 041
     Dates: start: 20220613
  5. OXALIPLATIN [Suspect]
     Active Substance: OXALIPLATIN
     Indication: Oesophageal cancer metastatic
     Dosage: DOSE UNKNOWN
     Route: 041
     Dates: start: 20220430, end: 20220513
  6. OXALIPLATIN [Suspect]
     Active Substance: OXALIPLATIN
     Dosage: DOSE UNKNOWN
     Route: 041
     Dates: start: 20220527
  7. LEUCOVORIN [Suspect]
     Active Substance: LEUCOVORIN
     Indication: Oesophageal cancer metastatic
     Dosage: DOSE UNKNOWN
     Route: 041
     Dates: start: 20220430, end: 20220513
  8. LEUCOVORIN [Suspect]
     Active Substance: LEUCOVORIN
     Dosage: DOSE UNKNOWN
     Route: 041
     Dates: start: 20220527
  9. FLUOROURACIL [Suspect]
     Active Substance: FLUOROURACIL
     Indication: Oesophageal cancer metastatic
     Dosage: BOLUS FORMULATION, DOSE UNKNOWN
     Route: 040
     Dates: start: 20220430, end: 20220513
  10. FLUOROURACIL [Suspect]
     Active Substance: FLUOROURACIL
     Dosage: DOSE UNKNOWN
     Route: 041
     Dates: start: 20220430, end: 20220513
  11. FLUOROURACIL [Suspect]
     Active Substance: FLUOROURACIL
     Dosage: BOLUS FORMULATION, DOSE UNKNOWN
     Route: 040
     Dates: start: 20220527
  12. FLUOROURACIL [Suspect]
     Active Substance: FLUOROURACIL
     Dosage: DOSE UNKNOWN
     Route: 041
     Dates: start: 20220527
  13. WEI CHANG AN [Concomitant]
     Dates: start: 202204
  14. ESOMEPRAZOLE MAGNESIUM [Concomitant]
     Active Substance: ESOMEPRAZOLE MAGNESIUM
     Dates: start: 202204
  15. INSULIN HUMAN [Concomitant]
     Active Substance: INSULIN HUMAN
     Dates: start: 201001
  16. GAN JU BING MEI [Concomitant]
     Dates: start: 20220428
  17. ONDANSETRON HYDROCHLORIDE [Concomitant]
     Active Substance: ONDANSETRON HYDROCHLORIDE
     Route: 042
     Dates: start: 20220430, end: 20220505
  18. DEXAMETHASONE SODIUM PHOSPHATE [Concomitant]
     Active Substance: DEXAMETHASONE SODIUM PHOSPHATE
     Route: 042
     Dates: start: 20220430, end: 20220502
  19. OMEPRAZOLE SODIUM [Concomitant]
     Active Substance: OMEPRAZOLE SODIUM
     Route: 042
     Dates: start: 20220430, end: 20220501
  20. EMEND [Concomitant]
     Active Substance: APREPITANT
     Dates: start: 20220428
  21. DEXTROSE AND SODIUM CHLORIDE [Concomitant]
     Active Substance: DEXTROSE MONOHYDRATE\SODIUM CHLORIDE
     Route: 042
     Dates: start: 20220430, end: 20220505
  22. INSULIN NOS [Concomitant]
     Active Substance: INSULIN NOS
     Route: 042
     Dates: start: 20220430, end: 20220505
  23. HYDROTALCITE [Concomitant]
     Active Substance: HYDROTALCITE
     Dates: start: 20220429
  24. METOCLOPRAMIDE HYDROCHLORIDE [Concomitant]
     Active Substance: METOCLOPRAMIDE HYDROCHLORIDE
     Route: 042
     Dates: start: 20220501, end: 20220501
  25. PANTOPRAZOLE SODIUM [Concomitant]
     Active Substance: PANTOPRAZOLE SODIUM
     Route: 042
     Dates: start: 20220502, end: 20220505
  26. MOSAPRIDE CITRATE [Concomitant]
     Active Substance: MOSAPRIDE CITRATE
     Dates: start: 20220505
  27. BROMISOVAL AND PROCAINE [Concomitant]
     Route: 042
     Dates: start: 20220502, end: 20220504
  28. NEPIDERMIN [Concomitant]
     Active Substance: NEPIDERMIN
     Dates: start: 20220512, end: 20220711

REACTIONS (1)
  - White blood cell count decreased [Recovered/Resolved]

NARRATIVE: CASE EVENT DATE: 20220513
